FAERS Safety Report 5052115-5 (Version None)
Quarter: 2006Q3

REPORT INFORMATION
  Report Type: 
  Country: None (occurrence: None)
  Receive Date: 20060711
  Receipt Date: 20060619
  Transmission Date: 20061208
  Serious: Yes (Death, Hospitalization)
  Sender: FDA-Public Use
  Company Number: ES200606000940

PATIENT
  Age: 52 Year
  Sex: Male
  Weight: 75 kg

DRUGS (7)
  1. XIGRIS [Suspect]
     Indication: SEPSIS
     Dosage: INTRAVENOUS
     Route: 042
     Dates: start: 20060329
  2. MIDAZOLAM HYDROCHLORIDE [Concomitant]
  3. ANTIBIOTICS [Concomitant]
  4. CORTICOSTEROIDS [Concomitant]
  5. DOPAMINE [Concomitant]
  6. NORADRENALINE (NOREPINEPHRINE) [Concomitant]
  7. PANTOPRAZOLE SODIUM [Concomitant]

REACTIONS (9)
  - ABDOMINAL PAIN UPPER [None]
  - BRAIN DEATH [None]
  - CEREBRAL HAEMORRHAGE [None]
  - DIABETES INSIPIDUS [None]
  - HYPOTENSION [None]
  - HYPOTHERMIA [None]
  - MULTI-ORGAN FAILURE [None]
  - PNEUMONIA [None]
  - RESPIRATORY FAILURE [None]
